FAERS Safety Report 16878916 (Version 2)
Quarter: 2019Q4

REPORT INFORMATION
  Report Type: Spontaneous
  Country: SG (occurrence: SG)
  Receive Date: 20191002
  Receipt Date: 20191016
  Transmission Date: 20200122
  Serious: Yes (Life-Threatening, Other)
  Sender: FDA-Public Use
  Company Number: PHHY2019SG227696

PATIENT
  Age: 25 Year
  Sex: Male

DRUGS (2)
  1. ACETAMINOPHEN (PARACETAMOL) [Suspect]
     Active Substance: ACETAMINOPHEN
     Indication: PRODUCT USED FOR UNKNOWN INDICATION
     Dosage: 13 G (26 TABLETS)
     Route: 065
  2. AMLODIPINE [Suspect]
     Active Substance: AMLODIPINE BESYLATE
     Indication: PRODUCT USED FOR UNKNOWN INDICATION
     Dosage: 550 MG (110 TABLET)
     Route: 065

REACTIONS (8)
  - Shock [Unknown]
  - Hypotension [Unknown]
  - Tachycardia [Unknown]
  - Somnolence [Unknown]
  - Toxicity to various agents [Unknown]
  - Lactic acidosis [Unknown]
  - Suicide attempt [Unknown]
  - Hypokalaemia [Unknown]
